FAERS Safety Report 7934977-4 (Version None)
Quarter: 2011Q4

REPORT INFORMATION
  Report Type: 
  Country: None (occurrence: None)
  Receive Date: 20111122
  Receipt Date: 20111114
  Transmission Date: 20120403
  Serious: Yes (Other)
  Sender: FDA-Public Use
  Company Number: US-JNJFOC-20111105835

PATIENT
  Sex: Female
  Weight: 95.26 kg

DRUGS (3)
  1. DURAGESIC-100 [Suspect]
     Indication: NERVOUS SYSTEM DISORDER
     Route: 062
     Dates: start: 20050101
  2. FENTANYL-100 [Suspect]
     Indication: NERVOUS SYSTEM DISORDER
     Route: 062
     Dates: start: 20050101
  3. NUCYNTA [Concomitant]
     Route: 065

REACTIONS (3)
  - WEIGHT DECREASED [None]
  - FIBROMYALGIA [None]
  - DRUG EFFECT DECREASED [None]
